FAERS Safety Report 9335978 (Version 1)
Quarter: 2013Q2

REPORT INFORMATION
  Report Type: Spontaneous
  Country: ES (occurrence: ES)
  Receive Date: 20130606
  Receipt Date: 20130606
  Transmission Date: 20140414
  Serious: Yes (Other)
  Sender: FDA-Public Use
  Company Number: ES-MERCK-1305ESP015041

PATIENT
  Age: 57 Year
  Sex: Male
  Weight: 84 kg

DRUGS (3)
  1. REBETOL [Suspect]
     Indication: CHRONIC HEPATITIS C
     Dosage: 600MG BREAKFAST/400MG DINNER
     Route: 048
     Dates: start: 20130108, end: 20130409
  2. PEGASYS [Suspect]
     Indication: CHRONIC HEPATITIS C
     Dosage: 180MCG/SEM
     Route: 058
     Dates: start: 20130108, end: 20130409
  3. TELAPREVIR [Suspect]
     Indication: CHRONIC HEPATITIS C
     Dosage: 1125MG C/12H
     Route: 048
     Dates: start: 20130205, end: 20130409

REACTIONS (2)
  - Localised oedema [Recovered/Resolved]
  - Rash [Recovering/Resolving]
